FAERS Safety Report 7300091-4 (Version None)
Quarter: 2011Q1

REPORT INFORMATION
  Report Type: 
  Country: None (occurrence: None)
  Receive Date: 20110217
  Receipt Date: 20110210
  Transmission Date: 20110831
  Serious: Yes (Hospitalization)
  Sender: FDA-Public Use
  Company Number: IT-ABBOTT-11P-083-0704218-00

PATIENT
  Age: 74 Year
  Sex: Female

DRUGS (4)
  1. CLARITHROMYCIN [Suspect]
     Indication: BRONCHITIS
  2. LORAZEPAM [Concomitant]
  3. LORAZEPAM [Concomitant]
     Indication: DEPRESSED MOOD
     Dosage: 1 MG DAILY
  4. AMYTRIPTILINE [Concomitant]
     Indication: DEPRESSED MOOD

REACTIONS (2)
  - STATUS EPILEPTICUS [None]
  - DELIRIUM [None]
